FAERS Safety Report 19274927 (Version 1)
Quarter: 2021Q2

REPORT INFORMATION
  Report Type: Spontaneous
  Country: US (occurrence: US)
  Receive Date: 20210519
  Receipt Date: 20210519
  Transmission Date: 20210717
  Serious: No
  Sender: FDA-Public Use
  Company Number: US-PFIZER INC-2021539848

PATIENT
  Sex: Female

DRUGS (27)
  1. DOCETAXEL. [Suspect]
     Active Substance: DOCETAXEL
     Dosage: 75 MG/M2, 1X/DAY
     Route: 042
     Dates: start: 20200124, end: 20200124
  2. DOCETAXEL. [Suspect]
     Active Substance: DOCETAXEL
     Dosage: 75 MG/M2, 1X/DAY
     Route: 042
     Dates: start: 20200214, end: 20200214
  3. CARBOPLATIN. [Concomitant]
     Active Substance: CARBOPLATIN
     Dosage: 190 ML, 1X/DAY
     Route: 042
     Dates: start: 20200109, end: 20200109
  4. PERJETA [Concomitant]
     Active Substance: PERTUZUMAB
     Dosage: 264 ML, 1X/DAY
     Route: 042
     Dates: start: 20200103, end: 20200103
  5. DOCETAXEL. [Suspect]
     Active Substance: DOCETAXEL
     Dosage: 75 MG/M2, 1X/DAY
     Route: 042
     Dates: start: 20200325, end: 20200325
  6. CARBOPLATIN. [Concomitant]
     Active Substance: CARBOPLATIN
     Dosage: 190 ML, 1X/DAY
     Route: 042
     Dates: start: 20200124, end: 20200124
  7. DOCETAXEL. [Suspect]
     Active Substance: DOCETAXEL
     Dosage: 75 MG/M2, 1X/DAY
     Route: 042
     Dates: start: 20200306, end: 20200306
  8. HERCEPTIN [Concomitant]
     Active Substance: TRASTUZUMAB
     Dosage: 309.98 ML, 1X/DAY
     Route: 042
     Dates: start: 20191206, end: 20191206
  9. CARBOPLATIN. [Concomitant]
     Active Substance: CARBOPLATIN
     Dosage: 190 ML, 1X/DAY
     Route: 042
     Dates: start: 20191206, end: 20191206
  10. CARBOPLATIN. [Concomitant]
     Active Substance: CARBOPLATIN
     Dosage: 190 ML, 1X/DAY
     Route: 042
     Dates: start: 20200106, end: 20200106
  11. HERCEPTIN [Concomitant]
     Active Substance: TRASTUZUMAB
     Dosage: 309.98 ML, 1X/DAY
     Route: 042
     Dates: start: 20200617, end: 20200617
  12. CARBOPLATIN. [Concomitant]
     Active Substance: CARBOPLATIN
     Dosage: 190 ML, 1X/DAY
     Route: 042
     Dates: start: 20200103, end: 20200103
  13. PERJETA [Concomitant]
     Active Substance: PERTUZUMAB
     Dosage: 278 ML, 1X/DAY
     Route: 042
     Dates: start: 20191206, end: 20191206
  14. DOCETAXEL. [Suspect]
     Active Substance: DOCETAXEL
     Indication: INVASIVE DUCTAL BREAST CARCINOMA
     Dosage: 75 MG/M2, 1X/DAY
     Route: 042
     Dates: start: 20191206, end: 20191206
  15. DOCETAXEL. [Suspect]
     Active Substance: DOCETAXEL
     Dosage: 75 MG/M2, 1X/DAY
     Route: 042
     Dates: start: 20200103, end: 20200103
  16. HERCEPTIN [Concomitant]
     Active Substance: TRASTUZUMAB
     Dosage: 309.98 ML, 1X/DAY
     Route: 042
     Dates: start: 20200708, end: 20200708
  17. CARBOPLATIN. [Concomitant]
     Active Substance: CARBOPLATIN
     Dosage: 190 ML, 1X/DAY
     Route: 042
     Dates: start: 20200128, end: 20200128
  18. TAXOTERE [Suspect]
     Active Substance: DOCETAXEL
     Dosage: UNK
  19. HERCEPTIN [Concomitant]
     Active Substance: TRASTUZUMAB
     Dosage: 292.86 ML, 1X/DAY
     Route: 042
     Dates: start: 20200103, end: 20200103
  20. HERCEPTIN [Concomitant]
     Active Substance: TRASTUZUMAB
     Dosage: 292.86 ML, 1X/DAY
     Route: 042
     Dates: start: 20200124, end: 20200124
  21. HERCEPTIN [Concomitant]
     Active Substance: TRASTUZUMAB
     Dosage: 309.98 ML, 1X/DAY
     Route: 042
     Dates: start: 20200729, end: 20200729
  22. CARBOPLATIN. [Concomitant]
     Active Substance: CARBOPLATIN
     Dosage: 190 ML, 1X/DAY
     Route: 042
     Dates: start: 20200116, end: 20200116
  23. CARBOPLATIN. [Concomitant]
     Active Substance: CARBOPLATIN
     Dosage: 190 ML, 1X/DAY
     Route: 042
     Dates: start: 20200214, end: 20200214
  24. CARBOPLATIN. [Concomitant]
     Active Substance: CARBOPLATIN
     Dosage: 190 ML, 1X/DAY
     Route: 042
     Dates: start: 20200306, end: 20200306
  25. CARBOPLATIN. [Concomitant]
     Active Substance: CARBOPLATIN
     Dosage: 190 ML, 1X/DAY
     Route: 042
     Dates: start: 20200325, end: 20200325
  26. HERCEPTIN [Concomitant]
     Active Substance: TRASTUZUMAB
     Dosage: 292.86 ML, 1X/DAY
     Route: 042
     Dates: start: 20200325, end: 20200325
  27. CARBOPLATIN. [Concomitant]
     Active Substance: CARBOPLATIN
     Dosage: 190 ML, 1X/DAY
     Route: 042
     Dates: start: 20200114, end: 20200114

REACTIONS (1)
  - Eye injury [Unknown]
